FAERS Safety Report 19665586 (Version 2)
Quarter: 2024Q3

REPORT INFORMATION
  Report Type: Spontaneous
  Country: US (occurrence: US)
  Receive Date: 20210806
  Receipt Date: 20240802
  Transmission Date: 20241017
  Serious: No
  Sender: ACCORD
  Company Number: US-ACCORD-220477

PATIENT
  Sex: Female

DRUGS (1)
  1. DOCETAXEL [Suspect]
     Active Substance: DOCETAXEL\DOCETAXEL ANHYDROUS
     Indication: Chemotherapy
     Dosage: CONCENTRATE
     Dates: start: 20170504, end: 20170817

REACTIONS (2)
  - Dacryostenosis acquired [Unknown]
  - Lacrimal structure injury [Unknown]
